FAERS Safety Report 7564963-8 (Version None)
Quarter: 2011Q2

REPORT INFORMATION
  Report Type: 
  Country: None (occurrence: None)
  Receive Date: 20110622
  Receipt Date: 20110401
  Transmission Date: 20111010
  Serious: Yes (Death, Other)
  Sender: FDA-Public Use
  Company Number: US-MYLANLABS-2011S1004493

PATIENT
  Age: 58 Year
  Sex: Male

DRUGS (3)
  1. BUPROPION HYDROCHLORIDE [Concomitant]
  2. TEMAZEPAM [Concomitant]
  3. CLOZAPINE [Suspect]
     Route: 048
     Dates: start: 20080701, end: 20110101

REACTIONS (1)
  - DEATH [None]
